FAERS Safety Report 9058282 (Version 2)
Quarter: 2013Q1

REPORT INFORMATION
  Report Type: Spontaneous
  Country: US (occurrence: US)
  Receive Date: 20130211
  Receipt Date: 20130314
  Transmission Date: 20140127
  Serious: No
  Sender: FDA-Public Use
  Company Number: US-BAYER-2013-017743

PATIENT
  Age: 30 Year
  Sex: Female
  Weight: 100.68 kg

DRUGS (1)
  1. MIRENA [Suspect]
     Indication: CONTRACEPTION
     Dosage: 20 MCG/24HR, CONT
     Route: 015
     Dates: start: 20121204, end: 20130123

REACTIONS (3)
  - Device expulsion [Recovered/Resolved]
  - Back pain [None]
  - Pelvic pain [None]
